FAERS Safety Report 11432931 (Version 1)
Quarter: 2015Q3

REPORT INFORMATION
  Report Type: Spontaneous
  Country: US (occurrence: US)
  Receive Date: 20150828
  Receipt Date: 20150828
  Transmission Date: 20151125
  Serious: Yes (Hospitalization, Other)
  Sender: FDA-Public Use
  Company Number: US-ABBVIE-15P-163-1400368-00

PATIENT
  Age: 45 Year
  Sex: Male

DRUGS (27)
  1. LISINOPRIL. [Concomitant]
     Active Substance: LISINOPRIL
     Indication: PRODUCT USED FOR UNKNOWN INDICATION
     Route: 048
  2. VITAMIN D3 [Concomitant]
     Active Substance: CHOLECALCIFEROL
     Indication: PRODUCT USED FOR UNKNOWN INDICATION
     Route: 048
  3. PRADAXA [Concomitant]
     Active Substance: DABIGATRAN ETEXILATE MESYLATE
     Indication: PRODUCT USED FOR UNKNOWN INDICATION
  4. ALPRAZOLAM. [Concomitant]
     Active Substance: ALPRAZOLAM
     Indication: PRODUCT USED FOR UNKNOWN INDICATION
     Dosage: AT BED TIME
     Route: 048
  5. TRAZODONE [Concomitant]
     Active Substance: TRAZODONE HYDROCHLORIDE
     Indication: PRODUCT USED FOR UNKNOWN INDICATION
     Dosage: AT BEDTIME
     Route: 048
  6. COREG [Concomitant]
     Active Substance: CARVEDILOL
     Indication: PRODUCT USED FOR UNKNOWN INDICATION
     Route: 048
  7. GLYBURIDE. [Concomitant]
     Active Substance: GLYBURIDE
     Indication: PRODUCT USED FOR UNKNOWN INDICATION
     Route: 048
  8. METFORMIN [Concomitant]
     Active Substance: METFORMIN HYDROCHLORIDE
     Indication: PRODUCT USED FOR UNKNOWN INDICATION
     Route: 048
  9. SIMVASTATIN. [Concomitant]
     Active Substance: SIMVASTATIN
     Indication: PRODUCT USED FOR UNKNOWN INDICATION
     Dosage: AT BEDTIME
     Route: 048
  10. ANDRODERM [Suspect]
     Active Substance: TESTOSTERONE
     Indication: BLOOD TESTOSTERONE DECREASED
     Dosage: 2MG/24HRS
     Route: 061
  11. ETODOLAC. [Concomitant]
     Active Substance: ETODOLAC
     Indication: PRODUCT USED FOR UNKNOWN INDICATION
     Route: 048
  12. LEVOTHYROXINE. [Concomitant]
     Active Substance: LEVOTHYROXINE
     Indication: PRODUCT USED FOR UNKNOWN INDICATION
     Route: 048
  13. ASPIRIN. [Concomitant]
     Active Substance: ASPIRIN
     Indication: PRODUCT USED FOR UNKNOWN INDICATION
     Route: 048
  14. GLUCOPHAGE [Concomitant]
     Active Substance: METFORMIN HYDROCHLORIDE
     Indication: PRODUCT USED FOR UNKNOWN INDICATION
  15. BACLOFEN. [Concomitant]
     Active Substance: BACLOFEN
     Indication: PRODUCT USED FOR UNKNOWN INDICATION
  16. ANDROGEL [Suspect]
     Active Substance: TESTOSTERONE
     Indication: BLOOD TESTOSTERONE DECREASED
     Dosage: 5GM/PKT
     Route: 061
  17. PROMETHAZINE [Concomitant]
     Active Substance: PROMETHAZINE\PROMETHAZINE HYDROCHLORIDE
     Indication: PRODUCT USED FOR UNKNOWN INDICATION
     Route: 048
  18. EFFEXOR [Concomitant]
     Active Substance: VENLAFAXINE HYDROCHLORIDE
     Indication: PRODUCT USED FOR UNKNOWN INDICATION
     Route: 048
  19. HEPARIN [Concomitant]
     Active Substance: HEPARIN SODIUM
     Indication: PRODUCT USED FOR UNKNOWN INDICATION
  20. ANDROGEL [Suspect]
     Active Substance: TESTOSTERONE
     Indication: BLOOD TESTOSTERONE DECREASED
     Dosage: 20.25MG/PUMP
     Route: 061
  21. ALBUTEROL SULFATE. [Concomitant]
     Active Substance: ALBUTEROL SULFATE
     Indication: PRODUCT USED FOR UNKNOWN INDICATION
     Route: 055
  22. CARBAMAZEPINE. [Concomitant]
     Active Substance: CARBAMAZEPINE
     Indication: PRODUCT USED FOR UNKNOWN INDICATION
     Route: 048
  23. AGGRENOX [Concomitant]
     Active Substance: ASPIRIN\DIPYRIDAMOLE
     Indication: PRODUCT USED FOR UNKNOWN INDICATION
     Dosage: 200-25MG
     Route: 048
  24. OMEPRAZOLE. [Concomitant]
     Active Substance: OMEPRAZOLE
     Indication: PRODUCT USED FOR UNKNOWN INDICATION
     Route: 048
  25. TRAMADOL. [Concomitant]
     Active Substance: TRAMADOL
     Indication: PRODUCT USED FOR UNKNOWN INDICATION
     Dosage: AS NEEDED
     Route: 048
  26. CYCLOBENZAPRINE [Concomitant]
     Active Substance: CYCLOBENZAPRINE
     Indication: PRODUCT USED FOR UNKNOWN INDICATION
     Route: 048
  27. DIGOXIN. [Concomitant]
     Active Substance: DIGOXIN
     Indication: PRODUCT USED FOR UNKNOWN INDICATION

REACTIONS (31)
  - Haemorrhoids [Recovered/Resolved]
  - Atrial fibrillation [Not Recovered/Not Resolved]
  - Paraesthesia [Not Recovered/Not Resolved]
  - Atrial fibrillation [Not Recovered/Not Resolved]
  - Fatigue [Recovered/Resolved]
  - Chest pain [Recovered/Resolved]
  - Chest pain [Recovered/Resolved]
  - Palpitations [Recovered/Resolved]
  - Nausea [Recovered/Resolved]
  - Hyperhidrosis [Recovered/Resolved]
  - Chest discomfort [Recovered/Resolved]
  - Blood magnesium decreased [Recovered/Resolved]
  - Pain [Recovered/Resolved]
  - Nausea [Recovered/Resolved]
  - Dyspnoea [Recovered/Resolved]
  - Chronic obstructive pulmonary disease [Recovered/Resolved]
  - Dizziness [Recovered/Resolved]
  - Diarrhoea [Recovered/Resolved]
  - Cerebrovascular accident [Unknown]
  - Myocardial infarction [Unknown]
  - Palpitations [Recovered/Resolved]
  - Bronchitis [Recovered/Resolved]
  - Atrial flutter [Recovered/Resolved]
  - Nausea [Recovered/Resolved]
  - Oedema peripheral [Recovered/Resolved]
  - Visual impairment [Unknown]
  - Chest discomfort [Recovered/Resolved]
  - Diarrhoea [Recovered/Resolved]
  - Hypoaesthesia [Recovered/Resolved]
  - Blood pressure increased [Recovered/Resolved]
  - Hyperglycaemia [Recovered/Resolved]

NARRATIVE: CASE EVENT DATE: 2006
